FAERS Safety Report 10906413 (Version 1)
Quarter: 2015Q1

REPORT INFORMATION
  Report Type: Spontaneous
  Country: GB (occurrence: GB)
  Receive Date: 20150312
  Receipt Date: 20150312
  Transmission Date: 20150721
  Serious: Yes (Hospitalization, Other)
  Sender: FDA-Public Use
  Company Number: GB-CIPLA LTD.-2015GB01736

PATIENT

DRUGS (6)
  1. CISPLATIN INJECTION 10MG [Concomitant]
     Dosage: 134 MG
     Route: 065
     Dates: start: 20140724
  2. TEMSIROLIMUS [Suspect]
     Active Substance: TEMSIROLIMUS
     Indication: PRODUCT USED FOR UNKNOWN INDICATION
     Dosage: 10MG
     Route: 065
     Dates: start: 20140724
  3. AMLODIPINE [Suspect]
     Active Substance: AMLODIPINE BESYLATE
     Indication: PRODUCT USED FOR UNKNOWN INDICATION
     Dosage: 10MG
     Route: 048
     Dates: start: 20140724
  4. GEMCITABINE [Concomitant]
     Active Substance: GEMCITABINE\GEMCITABINE HYDROCHLORIDE
     Dosage: 1900MG
     Route: 065
     Dates: start: 20140724
  5. DOMPERIDONE [Suspect]
     Active Substance: DOMPERIDONE
     Indication: PRODUCT USED FOR UNKNOWN INDICATION
     Dosage: 40MG 4 TIMES A DAY
     Route: 048
     Dates: start: 20140724
  6. NICORANDIL [Concomitant]
     Active Substance: NICORANDIL
     Dosage: 5MG
     Route: 048

REACTIONS (4)
  - Hypotension [Unknown]
  - Syncope [Recovered/Resolved]
  - Bradycardia [Unknown]
  - Loss of consciousness [Unknown]

NARRATIVE: CASE EVENT DATE: 20140731
